FAERS Safety Report 25010349 (Version 1)
Quarter: 2025Q1

REPORT INFORMATION
  Report Type: Spontaneous
  Country: PL (occurrence: PL)
  Receive Date: 20250225
  Receipt Date: 20250225
  Transmission Date: 20250408
  Serious: Yes (Death, Hospitalization)
  Sender: PURDUE
  Company Number: PL-PURDUE-USA-2025-0315674

PATIENT
  Age: 73 Year
  Sex: Female
  Weight: 42 kg

DRUGS (4)
  1. MORPHINE SULFATE [Suspect]
     Active Substance: MORPHINE SULFATE
     Indication: Lung neoplasm malignant
     Dosage: 10 MILLIGRAM, QOD
     Route: 048
     Dates: start: 20250205, end: 20250207
  2. Anapran [Concomitant]
     Indication: Product used for unknown indication
     Dosage: 500 MILLIGRAM, QOD
     Route: 048
  3. PABI-DEXAMETHASON [Concomitant]
     Indication: Product used for unknown indication
     Dosage: 2 MILLIGRAM, QOD
     Route: 048
  4. FORIGERIMOD [Concomitant]
     Active Substance: FORIGERIMOD
     Indication: Product used for unknown indication
     Dosage: 20 MILLIGRAM, DAILY
     Route: 048

REACTIONS (2)
  - Laboratory test abnormal [Fatal]
  - Renal impairment [Fatal]

NARRATIVE: CASE EVENT DATE: 20250206
